FAERS Safety Report 5934088-3 (Version None)
Quarter: 2008Q4

REPORT INFORMATION
  Report Type: 
  Country: None (occurrence: None)
  Receive Date: 20081029
  Receipt Date: 20081023
  Transmission Date: 20090506
  Serious: Yes (Death)
  Sender: FDA-Public Use
  Company Number: RU-MERCK-0810RUS00006

PATIENT
  Age: 19 Year
  Sex: Male

DRUGS (2)
  1. CANCIDAS [Suspect]
     Indication: SEPSIS
     Route: 041
     Dates: start: 20081021, end: 20081021
  2. CANCIDAS [Suspect]
     Route: 041
     Dates: start: 20081022, end: 20081023

REACTIONS (1)
  - CARDIAC FAILURE [None]
